FAERS Safety Report 24991406 (Version 1)
Quarter: 2025Q1

REPORT INFORMATION
  Report Type: Spontaneous
  Country: JP (occurrence: JP)
  Receive Date: 20250220
  Receipt Date: 20250220
  Transmission Date: 20250409
  Serious: Yes (Other)
  Sender: AMGEN
  Company Number: JP-AMGEN-JPNSP2025029817

PATIENT
  Age: 60 Year
  Sex: Female

DRUGS (7)
  1. BLINCYTO [Suspect]
     Active Substance: BLINATUMOMAB
     Indication: Philadelphia positive acute lymphocytic leukaemia
     Route: 040
  2. BLINCYTO [Suspect]
     Active Substance: BLINATUMOMAB
     Route: 040
  3. BLINCYTO [Suspect]
     Active Substance: BLINATUMOMAB
     Route: 040
  4. BLINCYTO [Suspect]
     Active Substance: BLINATUMOMAB
     Route: 040
  5. BLINCYTO [Suspect]
     Active Substance: BLINATUMOMAB
     Route: 040
  6. BLINCYTO [Suspect]
     Active Substance: BLINATUMOMAB
     Route: 040
  7. BLINCYTO [Suspect]
     Active Substance: BLINATUMOMAB
     Route: 040

REACTIONS (2)
  - Minimal residual disease [Recovered/Resolved]
  - White blood cell count decreased [Recovered/Resolved]
